FAERS Safety Report 13406494 (Version 2)
Quarter: 2017Q3

REPORT INFORMATION
  Report Type: Spontaneous
  Country: US (occurrence: US)
  Receive Date: 20170405
  Receipt Date: 20170707
  Transmission Date: 20171127
  Serious: No
  Sender: FDA-Public Use
  Company Number: US-EPIC PHARMA LLC-2016EPC00027

PATIENT
  Sex: Female
  Weight: 65.76 kg

DRUGS (26)
  1. VITAMIN B12 [Concomitant]
     Active Substance: CYANOCOBALAMIN
     Dosage: UNK, 1X/WEEK
  2. UNSPECIFIED EYE DROPS [Concomitant]
     Active Substance: UNSPECIFIED INGREDIENT
  3. MAXALT [Concomitant]
     Active Substance: RIZATRIPTAN BENZOATE
  4. ACETAMINOPHEN / BUTALBITAL / CAFFEINE [Concomitant]
  5. N-ACETYL CYSTEINE [Concomitant]
  6. MIRALAX [Concomitant]
     Active Substance: POLYETHYLENE GLYCOL 3350
  7. LEVOTHYROXINE. [Concomitant]
     Active Substance: LEVOTHYROXINE
  8. MEDROXYPROGESTERONE [Concomitant]
     Active Substance: MEDROXYPROGESTERONE
  9. LYRICA [Concomitant]
     Active Substance: PREGABALIN
  10. LACTULOSE. [Concomitant]
     Active Substance: LACTULOSE
  11. VITAMIN E [Concomitant]
     Active Substance: .ALPHA.-TOCOPHEROL
  12. BREO ELLIPTA [Concomitant]
     Active Substance: FLUTICASONE FUROATE\VILANTEROL TRIFENATATE
  13. OXYCODONE HYDROCHLORIDE. [Suspect]
     Active Substance: OXYCODONE HYDROCHLORIDE
     Indication: NEUROPATHY PERIPHERAL
     Dosage: 0.5 TO 1 TABLET UP TO 4 TIMES DAILY
     Route: 048
     Dates: start: 20161212
  14. OXYCODONE HYDROCHLORIDE. [Suspect]
     Active Substance: OXYCODONE HYDROCHLORIDE
     Indication: PAIN
     Dosage: 0.5 TO 1 TABLET UP TO 4 TIMES DAILYUNK
     Route: 048
  15. VITAMIN C [Concomitant]
     Active Substance: ASCORBIC ACID
  16. TURMERIC EXTRACT [Concomitant]
  17. METHYLPREDNISOLONE. [Concomitant]
     Active Substance: METHYLPREDNISOLONE
  18. DEXILANT [Concomitant]
     Active Substance: DEXLANSOPRAZOLE
  19. CARAFATE [Concomitant]
     Active Substance: SUCRALFATE
  20. VITAMIN D3 [Concomitant]
     Active Substance: CHOLECALCIFEROL
  21. MAGNESIUM [Concomitant]
     Active Substance: MAGNESIUM
  22. FLAX SEED OIL CAPSULES [Concomitant]
  23. PROVENTIL [Concomitant]
     Active Substance: ALBUTEROL
  24. ESTRADIOL. [Concomitant]
     Active Substance: ESTRADIOL
  25. OMEPRAZOLE. [Concomitant]
     Active Substance: OMEPRAZOLE
  26. ZOLPIDEM [Concomitant]
     Active Substance: ZOLPIDEM\ZOLPIDEM TARTRATE

REACTIONS (2)
  - Product substitution issue [Not Recovered/Not Resolved]
  - Drug ineffective [Not Recovered/Not Resolved]
